FAERS Safety Report 7311867-1 (Version None)
Quarter: 2011Q1

REPORT INFORMATION
  Report Type: 
  Country: None (occurrence: None)
  Receive Date: 20110215
  Receipt Date: 20110215
  Transmission Date: 20110831
  Serious: Yes (Hospitalization)
  Sender: FDA-Public Use
  Company Number: None

PATIENT
  Age: 64 Year
  Sex: Male

DRUGS (12)
  1. SEPTRA DS [Suspect]
     Indication: INFECTION
     Dosage: ONE BID PO RECENT
     Route: 048
  2. IMDUR [Concomitant]
  3. LISINOPRIL [Concomitant]
  4. HUMALOG [Concomitant]
  5. TOPROL-XL [Concomitant]
  6. ZEMPLAR [Concomitant]
  7. NPH INSULIN [Concomitant]
  8. RANEXA [Concomitant]
  9. SODIUM BICARB [Concomitant]
  10. ASA [Concomitant]
  11. LASIX [Concomitant]
  12. SIMVASTATIN [Concomitant]

REACTIONS (8)
  - ANAEMIA [None]
  - RENAL FAILURE ACUTE [None]
  - DRUG HYPERSENSITIVITY [None]
  - FATIGUE [None]
  - PRURITUS [None]
  - WEIGHT DECREASED [None]
  - DEHYDRATION [None]
  - DIABETES MELLITUS INADEQUATE CONTROL [None]
